FAERS Safety Report 10622378 (Version 1)
Quarter: 2014Q4

REPORT INFORMATION
  Report Type: Spontaneous
  Country: US (occurrence: US)
  Receive Date: 20141203
  Receipt Date: 20141203
  Transmission Date: 20150529
  Serious: No
  Sender: FDA-Public Use
  Company Number: US-EISAI MEDICAL RESEARCH-EC-2014-001917

PATIENT
  Sex: Female

DRUGS (5)
  1. ERIBULIN [Suspect]
     Active Substance: ERIBULIN
     Route: 041
  2. ERIBULIN [Suspect]
     Active Substance: ERIBULIN
     Route: 041
  3. ERIBULIN [Suspect]
     Active Substance: ERIBULIN
     Route: 041
  4. ERIBULIN [Suspect]
     Active Substance: ERIBULIN
     Indication: BREAST CANCER METASTATIC
     Route: 041
  5. ERIBULIN [Suspect]
     Active Substance: ERIBULIN
     Route: 041

REACTIONS (4)
  - Oral candidiasis [Recovered/Resolved]
  - Mucosal inflammation [Recovered/Resolved]
  - Thrombocytopenia [Unknown]
  - Neutropenia [Recovering/Resolving]
